FAERS Safety Report 9382838 (Version 3)
Quarter: 2014Q1

REPORT INFORMATION
  Report Type: Spontaneous
  Country: US (occurrence: US)
  Receive Date: 20130703
  Receipt Date: 20140331
  Transmission Date: 20141002
  Serious: Yes (Death, Hospitalization)
  Sender: FDA-Public Use
  Company Number: US-GLAXOSMITHKLINE-A1029909A

PATIENT
  Sex: Female

DRUGS (1)
  1. AVANDIA [Suspect]
     Indication: DIABETES MELLITUS
     Dosage: 4MG TWICE PER DAY
     Route: 048
     Dates: start: 1999, end: 2002

REACTIONS (6)
  - Cardiac arrest [Fatal]
  - Acute respiratory failure [Unknown]
  - Cardiac failure congestive [Unknown]
  - Acute pulmonary oedema [Unknown]
  - Coronary artery disease [Unknown]
  - Pleural effusion [Unknown]
